FAERS Safety Report 8190768-3 (Version None)
Quarter: 2012Q1

REPORT INFORMATION
  Report Type: 
  Country: None (occurrence: None)
  Receive Date: 20120307
  Receipt Date: 20120223
  Transmission Date: 20120608
  Serious: Yes (Other)
  Sender: FDA-Public Use
  Company Number: ES-GILEAD-2012-0049705

PATIENT
  Age: 53 Year
  Sex: Male

DRUGS (9)
  1. HEPSERA [Concomitant]
     Indication: HEPATITIS B
     Dosage: UNK
     Dates: start: 20080313, end: 20100101
  2. INSULIN [Concomitant]
     Indication: DIABETES MELLITUS
     Dosage: UNK
  3. ANGIOTENSIN-CONVERTING-ENZYME INHIBITOR [Concomitant]
     Indication: PRODUCT USED FOR UNKNOWN INDICATION
     Dosage: UNK
  4. VIREAD [Suspect]
     Indication: HEPATITIS B
     Dosage: 300 MG, QD
     Dates: start: 20100101, end: 20110901
  5. HYPOLIPIDEMIC DRUG [Concomitant]
     Indication: PRODUCT USED FOR UNKNOWN INDICATION
     Dosage: UNK
  6. ENALAPRIL MALEATE [Concomitant]
     Indication: HYPERTENSION
     Dosage: 20 MG, QD
  7. SIMVASTATIN [Concomitant]
     Indication: DYSLIPIDAEMIA
  8. ADEFOVIR DIPIVOXIL [Concomitant]
     Indication: HEPATITIS B
     Dosage: 10 MG, QD
     Dates: start: 20080313
  9. ORAL ANTI-DIABETES DRUGS [Concomitant]
     Indication: DIABETES MELLITUS
     Dosage: UNK

REACTIONS (3)
  - FRACTURE [None]
  - FANCONI SYNDROME ACQUIRED [None]
  - OSTEOPOROSIS [None]
